FAERS Safety Report 10861206 (Version 4)
Quarter: 2015Q2

REPORT INFORMATION
  Report Type: Spontaneous
  Country: GB (occurrence: GB)
  Receive Date: 20150224
  Receipt Date: 20150527
  Transmission Date: 20150821
  Serious: Yes (Hospitalization, Other)
  Sender: FDA-Public Use
  Company Number: GB-TEVA-541372ACC

PATIENT
  Age: 49 Year
  Sex: Male
  Weight: 87 kg

DRUGS (7)
  1. SIMVASTATIN. [Concomitant]
     Active Substance: SIMVASTATIN
     Route: 048
  2. TIOTROPIUM [Concomitant]
     Active Substance: TIOTROPIUM
     Route: 048
  3. EPIRUBICIN [Suspect]
     Active Substance: EPIRUBICIN
     Indication: GASTRIC CANCER
     Dosage: ACTUAL DOSE 80 MG GIVEN AT MOST RECENT ADMINISTRATION ON 20/SEP/2013.
     Route: 042
     Dates: start: 20130830
  4. BENDROFLUMETHIAZIDE [Concomitant]
     Active Substance: BENDROFLUMETHIAZIDE
     Route: 048
  5. CISPLATIN. [Suspect]
     Active Substance: CISPLATIN
     Indication: GASTRIC CANCER
     Dosage: ACTUAL DOSE 95 MG GIVEN AT MOST RECENT ADMINISTRATION ON 20/SEP/2013.
     Route: 042
     Dates: start: 20130830
  6. AVASTIN [Suspect]
     Active Substance: BEVACIZUMAB
     Indication: GASTRIC CANCER
     Dosage: ACTUAL DOSE 650 MG GIVEN AT MOST RECENT ADMINISTRATION ON 20/SEP/2013.
     Route: 042
     Dates: start: 20130830
  7. XELODA [Suspect]
     Active Substance: CAPECITABINE
     Indication: GASTRIC CANCER
     Dosage: ACTUAL DOSE 42000 MG GIVEN AT MOST RECENT ADMINISTRATION ON 20/SEP/2013.
     Route: 048
     Dates: start: 20130830

REACTIONS (3)
  - Arthralgia [Recovered/Resolved]
  - Myalgia [Recovered/Resolved]
  - Chest pain [Recovered/Resolved]

NARRATIVE: CASE EVENT DATE: 20130904
